FAERS Safety Report 4549926-9 (Version None)
Quarter: 2005Q1

REPORT INFORMATION
  Report Type: 
  Country: None (occurrence: None)
  Receive Date: 20041230
  Receipt Date: 20040512
  Transmission Date: 20050727
  Serious: Yes (Other)
  Sender: FDA-Public Use
  Company Number: 04-05-0689

PATIENT
  Age: 16 Year
  Sex: Male
  Weight: 107.9561 kg

DRUGS (10)
  1. CLOZAPINE [Suspect]
     Indication: DEPRESSION
     Dosage: 50MG AM ORAL; 75MG HS ORAL
     Route: 048
     Dates: start: 20040401
  2. CLOZAPINE [Suspect]
     Indication: SCHIZOAFFECTIVE DISORDER
     Dosage: 50MG AM ORAL; 75MG HS ORAL
     Route: 048
     Dates: start: 20040401
  3. CLOZAPINE [Suspect]
     Indication: DEPRESSION
     Dosage: 50MG AM ORAL; 75MG HS ORAL
     Route: 048
     Dates: start: 20040401
  4. CLOZAPINE [Suspect]
     Indication: SCHIZOAFFECTIVE DISORDER
     Dosage: 50MG AM ORAL; 75MG HS ORAL
     Route: 048
     Dates: start: 20040401
  5. FLUVOXAMINE MALEATE [Suspect]
     Indication: PARENT-CHILD PROBLEM
     Dosage: 50MG AM ORAL; 100MG HS ORAL
     Route: 048
     Dates: start: 20030101, end: 20040503
  6. FLUVOXAMINE MALEATE [Suspect]
     Indication: PARENT-CHILD PROBLEM
     Dosage: 50MG AM ORAL; 100MG HS ORAL
     Route: 048
     Dates: start: 20030101, end: 20040530
  7. HALOPERIDOL [Concomitant]
  8. LUVOX [Concomitant]
  9. DOXYCYCLINE [Concomitant]
  10. BENZTROPINE MESYLATE [Concomitant]

REACTIONS (1)
  - CONVULSION [None]
